FAERS Safety Report 9435315 (Version 1)
Quarter: 2013Q3

REPORT INFORMATION
  Report Type: Spontaneous
  Country: BR (occurrence: BR)
  Receive Date: 20130801
  Receipt Date: 20130801
  Transmission Date: 20140515
  Serious: Yes (Other)
  Sender: FDA-Public Use
  Company Number: BR-AMGEN-BRASP2012039931

PATIENT
  Age: 36 Year
  Sex: Female
  Weight: 87 kg

DRUGS (4)
  1. ENBREL [Suspect]
     Indication: ANKYLOSING SPONDYLITIS
     Dosage: UNK
     Route: 065
     Dates: start: 201003
  2. ENBREL [Suspect]
     Dosage: 50 MG, QWK
     Route: 058
     Dates: start: 201207
  3. TANDRILAX [Concomitant]
     Indication: PAIN
     Dosage: UNK UNK, AS NECESSARY
  4. TANDRILAX [Concomitant]
     Indication: MUSCLE RELAXANT THERAPY

REACTIONS (4)
  - Immune system disorder [Unknown]
  - Weight increased [Unknown]
  - Pharyngitis [Unknown]
  - Urinary tract infection [Not Recovered/Not Resolved]
